FAERS Safety Report 23625387 (Version 1)
Quarter: 2024Q1

REPORT INFORMATION
  Report Type: Spontaneous
  Country: US (occurrence: US)
  Receive Date: 20240313
  Receipt Date: 20240313
  Transmission Date: 20240410
  Serious: No
  Sender: FDA-Public Use
  Company Number: US-JNJFOC-20240309842

PATIENT
  Age: 8 Year
  Sex: Male

DRUGS (2)
  1. RISPERDAL [Suspect]
     Active Substance: RISPERIDONE
     Indication: Behaviour disorder
     Route: 048
     Dates: start: 201305
  2. RISPERDAL [Suspect]
     Active Substance: RISPERIDONE
     Dosage: 1 ML=1 MG AT MORNING, THEN 0.5 ML AT EVENING AND WHEN OFF BUS THEN AT 8 PM ANOTHER 0.5 ML
     Route: 048
     Dates: start: 201311

REACTIONS (3)
  - Weight increased [Unknown]
  - Gynaecomastia [Unknown]
  - Off label use [Unknown]

NARRATIVE: CASE EVENT DATE: 20130501
